FAERS Safety Report 8537242 (Version 3)
Quarter: 2014Q1

REPORT INFORMATION
  Report Type: Report from Study
  Country: US (occurrence: US)
  Receive Date: 20120430
  Receipt Date: 20140115
  Transmission Date: 20141002
  Serious: Yes (Hospitalization, Other)
  Sender: FDA-Public Use
  Company Number: US-ALEXION PHARMACEUTICALS INC.-A201200800

PATIENT
  Age: 16 Year
  Sex: Female

DRUGS (10)
  1. SOLIRIS [Suspect]
     Indication: HAEMOLYTIC URAEMIC SYNDROME
     Dosage: 1200 MG, QW
     Route: 042
     Dates: start: 201112
  2. SOLIRIS [Suspect]
     Dosage: 1200 MG, Q3.5WX3W
     Route: 042
  3. SOLIRIS [Suspect]
     Dosage: 1200 MG, QM
     Route: 042
  4. PROTONIX [Concomitant]
     Dosage: UNK
  5. PROGRAF [Concomitant]
     Dosage: UNK
  6. CELLCEPT [Concomitant]
     Dosage: UNK
  7. PREDNISONE [Concomitant]
     Dosage: UNK
  8. IRON [Concomitant]
     Dosage: UNK
  9. SODIUM BICARBONATE [Concomitant]
     Dosage: UNK
  10. CALCITROL [Concomitant]
     Dosage: UNK

REACTIONS (4)
  - Gastrointestinal viral infection [Recovered/Resolved]
  - Biopsy kidney [Unknown]
  - Blood creatinine increased [Recovering/Resolving]
  - Complement factor decreased [Unknown]
